FAERS Safety Report 16482282 (Version 1)
Quarter: 2019Q2

REPORT INFORMATION
  Report Type: Spontaneous
  Country: SE (occurrence: SE)
  Receive Date: 20190627
  Receipt Date: 20190627
  Transmission Date: 20190711
  Serious: Yes (Hospitalization)
  Sender: FDA-Public Use
  Company Number: SE-TEVA-2019-SE-1069573

PATIENT
  Age: 30 Year
  Sex: Male

DRUGS (5)
  1. PROPAVAN [Suspect]
     Active Substance: PROPIOMAZINE
     Dates: start: 20190218, end: 20190218
  2. LERGIGAN (PROMETHAZINE HYDROCHLORIDE) [Suspect]
     Active Substance: PROMETHAZINE HYDROCHLORIDE
     Route: 048
     Dates: start: 20190218, end: 20190218
  3. CITALOPRAM [Suspect]
     Active Substance: CITALOPRAM HYDROBROMIDE
     Dates: start: 20190218, end: 20190218
  4. OLANZAPINE. [Suspect]
     Active Substance: OLANZAPINE
     Dates: start: 20190218, end: 20190218
  5. ALIMEMAZINE [Suspect]
     Active Substance: TRIMEPRAZINE
     Dates: start: 20190218, end: 20190218

REACTIONS (6)
  - Mydriasis [Unknown]
  - Disorientation [Unknown]
  - Intentional self-injury [Unknown]
  - Intentional overdose [Unknown]
  - Lethargy [Unknown]
  - Depressed level of consciousness [Unknown]

NARRATIVE: CASE EVENT DATE: 20190218
